FAERS Safety Report 7499032-9 (Version None)
Quarter: 2011Q2

REPORT INFORMATION
  Report Type: 
  Country: None (occurrence: None)
  Receive Date: 20110524
  Receipt Date: 20110310
  Transmission Date: 20111010
  Serious: Yes (Death, Other)
  Sender: FDA-Public Use
  Company Number: US-BAYER-201010293NA

PATIENT
  Age: 44 Year
  Sex: Female
  Weight: 55 kg

DRUGS (10)
  1. PROTAMINE SULFATE [Concomitant]
     Dosage: 150 MG, 30 MG
     Route: 042
  2. TRASYLOL [Suspect]
     Indication: MITRAL VALVE REPLACEMENT
     Dosage: INITIAL TEST DOSE OF 1 ML
     Route: 042
     Dates: start: 20070328, end: 20070328
  3. TRASYLOL [Suspect]
     Indication: AORTIC VALVE REPLACEMENT
     Dosage: LOADING DOSE OF 200 ML; DRIP AT 50ML/HR
     Route: 042
     Dates: start: 20070328, end: 20070328
  4. IBUPROFEN [Concomitant]
     Indication: PAIN
     Dosage: 200 MG EVERY 4-6 HOURS AS NEEDED
  5. LASIX [Concomitant]
     Dosage: UNK
     Route: 042
     Dates: start: 20060511
  6. ACETYLSALICYLIC ACID SRT [Concomitant]
     Dosage: 81 MG
     Route: 048
  7. TRASYLOL [Suspect]
     Indication: MITRAL VALVE REPAIR
     Dosage: UNK
     Dates: start: 20060519
  8. RED BLOOD CELLS [Concomitant]
     Dosage: 3 UNITS
     Dates: start: 20070328
  9. PLASMA [Concomitant]
     Dosage: 2 UNITS
     Dates: start: 20070328
  10. HEPARIN [Concomitant]
     Dosage: 5000 UNITS
     Route: 042
     Dates: start: 20070328, end: 20070328

REACTIONS (13)
  - ANXIETY [None]
  - EMOTIONAL DISTRESS [None]
  - DEPRESSION [None]
  - DEATH [None]
  - CEREBROVASCULAR ACCIDENT [None]
  - RENAL FAILURE [None]
  - FEAR [None]
  - UNEVALUABLE EVENT [None]
  - PAIN [None]
  - INJURY [None]
  - MYOCARDIAL INFARCTION [None]
  - RENAL INJURY [None]
  - ANHEDONIA [None]
